FAERS Safety Report 9314548 (Version 1)
Quarter: 2013Q2

REPORT INFORMATION
  Report Type: Spontaneous
  Country: IT (occurrence: IT)
  Receive Date: 20130529
  Receipt Date: 20130529
  Transmission Date: 20140414
  Serious: Yes (Other)
  Sender: FDA-Public Use
  Company Number: IT-TEVA-406745ISR

PATIENT
  Age: 66 Year
  Sex: Female

DRUGS (6)
  1. CARBAMAZEPINE [Suspect]
     Indication: EPILEPSY
     Dosage: 500 MILLIGRAM DAILY;
     Route: 048
     Dates: start: 19920615
  2. LEVODOPA [Suspect]
     Indication: PARKINSON^S DISEASE
     Dosage: 200 MILLIGRAM DAILY;
     Route: 048
     Dates: start: 20120715
  3. ROTIGOTINA [Suspect]
     Indication: PARKINSON^S DISEASE
     Dosage: 8 MILLIGRAM DAILY;
     Route: 062
     Dates: start: 20121015
  4. CARDIOASPIRIN [Concomitant]
     Indication: ACUTE MYOCARDIAL INFARCTION
     Dosage: GASTRO-RESISTANT TABLET
     Dates: start: 2002
  5. LESCOL [Concomitant]
     Indication: HYPERCHOLESTEROLAEMIA
     Dates: start: 2002
  6. CARDURA [Concomitant]
     Indication: HYPERTENSION
     Dates: start: 2002

REACTIONS (3)
  - Optic neuropathy [Not Recovered/Not Resolved]
  - Angiosclerosis [Not Recovered/Not Resolved]
  - Maculopathy [Not Recovered/Not Resolved]
